FAERS Safety Report 6483553-1 (Version None)
Quarter: 2009Q4

REPORT INFORMATION
  Report Type: 
  Country: None (occurrence: None)
  Receive Date: 20091208
  Receipt Date: 20091208
  Transmission Date: 20100525
  Serious: Yes (Hospitalization)
  Sender: FDA-Public Use
  Company Number: None

PATIENT
  Sex: Male
  Weight: 68.0396 kg

DRUGS (2)
  1. CLOFARABINE, 1 MG, GENZYME CORP. [Suspect]
     Indication: MYELODYSPLASTIC SYNDROME
     Dosage: 1 MG Q10D PO
     Route: 048
     Dates: start: 20090716, end: 20090725
  2. CLOFARABINE, 1 MG, GENZYME CORP. [Suspect]
     Indication: MYELODYSPLASTIC SYNDROME
     Dosage: 1 MG Q10D PO
     Route: 048
     Dates: start: 20090813

REACTIONS (6)
  - COORDINATION ABNORMAL [None]
  - DISORIENTATION [None]
  - HYPOPHAGIA [None]
  - SPEECH DISORDER [None]
  - SUBDURAL HAEMATOMA [None]
  - THROMBOCYTOPENIA [None]
